FAERS Safety Report 17780716 (Version 1)
Quarter: 2020Q2

REPORT INFORMATION
  Report Type: Spontaneous
  Country: US (occurrence: US)
  Receive Date: 20200513
  Receipt Date: 20200513
  Transmission Date: 20200714
  Serious: Yes (Death, Hospitalization)
  Sender: FDA-Public Use
  Company Number: None

PATIENT
  Age: 57 Year
  Sex: Male
  Weight: 93.89 kg

DRUGS (2)
  1. ASPIRIN (ASPIRIN 325MG TAB) [Suspect]
     Active Substance: ASPIRIN
     Indication: CARDIAC FAILURE CONGESTIVE
     Route: 048
     Dates: start: 20191101, end: 20191104
  2. HEPARIN SODIUM, PORCINE [Suspect]
     Active Substance: HEPARIN SODIUM
     Indication: CARDIAC FAILURE CONGESTIVE
     Dosage: ?          OTHER STRENGTH: 5000 UNT/ML;?
     Dates: start: 20191101, end: 20191104

REACTIONS (5)
  - Aspiration [None]
  - Respiratory failure [None]
  - Dysphagia [None]
  - Cardiac arrest [None]
  - Cerebral haemorrhage [None]

NARRATIVE: CASE EVENT DATE: 20191101
